FAERS Safety Report 22343744 (Version 1)
Quarter: 2023Q2

REPORT INFORMATION
  Report Type: Spontaneous
  Country: US (occurrence: US)
  Receive Date: 20230519
  Receipt Date: 20230519
  Transmission Date: 20230721
  Serious: Yes (Other)
  Sender: FDA-Public Use
  Company Number: US-LUPIN PHARMACEUTICALS INC.-2023-03737

PATIENT

DRUGS (1)
  1. SIMVASTATIN [Suspect]
     Active Substance: SIMVASTATIN
     Indication: Product used for unknown indication
     Dosage: UNK
     Route: 065

REACTIONS (7)
  - Myocardial infarction [Unknown]
  - Oesophageal stenosis [Unknown]
  - Foreign body in throat [Unknown]
  - Adverse event [Unknown]
  - Low density lipoprotein abnormal [Unknown]
  - Wrong technique in product usage process [Unknown]
  - Product taste abnormal [Unknown]
